FAERS Safety Report 7645454-2 (Version None)
Quarter: 2011Q3

REPORT INFORMATION
  Report Type: 
  Country: None (occurrence: None)
  Receive Date: 20110729
  Receipt Date: 20110721
  Transmission Date: 20111222
  Serious: Yes (Death)
  Sender: FDA-Public Use
  Company Number: JP-GENZYME-THYM-1002519

PATIENT
  Sex: Male
  Weight: 47 kg

DRUGS (13)
  1. ACYCLOVIR [Concomitant]
     Indication: INFECTION PROPHYLAXIS
     Dosage: UNK
     Route: 065
     Dates: start: 20100830, end: 20101116
  2. THYMOGLOBULIN [Suspect]
     Dosage: 47 MG, QD
     Route: 042
     Dates: start: 20100917, end: 20100917
  3. BUSULFAN [Concomitant]
     Indication: BONE MARROW CONDITIONING REGIMEN
     Dosage: UNK
     Route: 065
     Dates: start: 20100824, end: 20100828
  4. DORIPENEM HYDRATE [Concomitant]
     Indication: PYREXIA
     Dosage: UNK
     Route: 065
     Dates: start: 20100904, end: 20101122
  5. THYMOGLOBULIN [Suspect]
     Indication: ACUTE GRAFT VERSUS HOST DISEASE
     Dosage: 47 MG, QD
     Route: 042
     Dates: start: 20100915, end: 20100915
  6. FLUDARABINE PHOSPHATE [Concomitant]
     Indication: BONE MARROW CONDITIONING REGIMEN
     Dosage: UNK
     Route: 065
     Dates: start: 20100823, end: 20100827
  7. CYCLOSPORINE [Concomitant]
     Indication: BONE MARROW CONDITIONING REGIMEN
     Dosage: UNK
     Route: 065
     Dates: start: 20100829
  8. METHOTREXATE [Concomitant]
     Indication: BONE MARROW CONDITIONING REGIMEN
     Dosage: UNK
     Route: 065
     Dates: start: 20100831, end: 20100905
  9. CORTICOSTEROID NOS [Concomitant]
     Indication: ACUTE GRAFT VERSUS HOST DISEASE
     Dosage: UNK
     Route: 065
     Dates: start: 20100907
  10. THYMOGLOBULIN [Suspect]
     Dosage: 47 MG, QD
     Route: 042
     Dates: start: 20100919, end: 20100919
  11. THYMOGLOBULIN [Suspect]
     Dosage: 47 MG, QD
     Route: 042
     Dates: start: 20101117, end: 20101117
  12. PREDNISOLONE ACETATE [Concomitant]
     Indication: GRAFT VERSUS HOST DISEASE
     Dosage: UNK
     Route: 065
     Dates: start: 20100907, end: 20101122
  13. LEVOFLOXACIN [Concomitant]
     Indication: INFECTION PROPHYLAXIS
     Dosage: UNK
     Route: 065
     Dates: start: 20101008, end: 20101117

REACTIONS (4)
  - GRAFT VERSUS HOST DISEASE [None]
  - THROMBOTIC MICROANGIOPATHY [None]
  - GASTROINTESTINAL INFECTION [None]
  - THERAPEUTIC RESPONSE DECREASED [None]
